FAERS Safety Report 9103986 (Version 2)
Quarter: 2013Q1

REPORT INFORMATION
  Report Type: Spontaneous
  Country: JP (occurrence: JP)
  Receive Date: 20130219
  Receipt Date: 20130311
  Transmission Date: 20140127
  Serious: Yes (Hospitalization, Other)
  Sender: FDA-Public Use
  Company Number: JP-JNJFOC-20121004301

PATIENT
  Age: 61 Year
  Sex: Female
  Weight: 43 kg

DRUGS (10)
  1. SIMPONI [Suspect]
     Indication: RHEUMATOID ARTHRITIS
     Route: 058
     Dates: start: 20120126, end: 20120905
  2. PREDONINE [Suspect]
     Indication: RHEUMATOID ARTHRITIS
     Route: 048
  3. PREDONINE [Suspect]
     Indication: RHEUMATOID ARTHRITIS
     Route: 048
     Dates: start: 20121010
  4. UNKNOWN MEDICATION [Concomitant]
     Route: 048
  5. TALION [Concomitant]
     Route: 048
  6. MUCOSTA [Concomitant]
     Route: 048
  7. CELECOX [Concomitant]
     Route: 048
  8. BAKTAR [Concomitant]
     Route: 048
  9. CLARITH [Concomitant]
     Route: 048
  10. EDIROL [Concomitant]
     Route: 048

REACTIONS (3)
  - Lymphoma [Recovered/Resolved]
  - Platelet count decreased [Recovering/Resolving]
  - Epstein-Barr virus test positive [Unknown]
